FAERS Safety Report 4725796-0 (Version None)
Quarter: 2005Q3

REPORT INFORMATION
  Report Type: 
  Country: None (occurrence: None)
  Receive Date: 20050722
  Receipt Date: 20050722
  Transmission Date: 20060218
  Serious: Yes (Hospitalization)
  Sender: FDA-Public Use
  Company Number: None

PATIENT
  Age: 71 Year
  Sex: Male
  Weight: 77.1115 kg

DRUGS (11)
  1. OXALIPLATIN ON DAY 1 EVERY 3 WEEKS [Suspect]
     Indication: PANCREATIC CARCINOMA
     Dosage: 130 MG/M2 120 MIN IV
     Route: 042
     Dates: start: 20050401, end: 20050422
  2. CAPECITABINE 2 DIVIDED DOSES FOR 14 DAYS [Suspect]
     Indication: PANCREATIC CARCINOMA
     Dosage: 2000 MG/M2 PO QD
     Route: 048
     Dates: start: 20050401, end: 20050424
  3. VERAPAMIL [Concomitant]
  4. COUMADIN [Concomitant]
  5. AMBIEN [Concomitant]
  6. NEURONTIN [Concomitant]
  7. FLOMAX [Concomitant]
  8. COLACE [Concomitant]
  9. M.V.I. [Concomitant]
  10. PANTOPRAZOLE SODIUM [Concomitant]
  11. GABAPENTIN [Concomitant]

REACTIONS (3)
  - DEHYDRATION [None]
  - NAUSEA [None]
  - VOMITING [None]
